FAERS Safety Report 13586299 (Version 2)
Quarter: 2017Q4

REPORT INFORMATION
  Report Type: Spontaneous
  Country: US (occurrence: US)
  Receive Date: 20170526
  Receipt Date: 20171109
  Transmission Date: 20180320
  Serious: Yes (Other)
  Sender: FDA-Public Use
  Company Number: US-BAYER-2017-087450

PATIENT
  Age: 32 Year
  Sex: Female

DRUGS (28)
  1. ULTRAM [Concomitant]
     Active Substance: TRAMADOL HYDROCHLORIDE
  2. CEFTIN [Concomitant]
     Active Substance: CEFUROXIME AXETIL
  3. LEVAQUIN [Concomitant]
     Active Substance: LEVOFLOXACIN
  4. QVAR [Concomitant]
     Active Substance: BECLOMETHASONE DIPROPIONATE
     Dosage: 40 ?G, UNK
  5. PULMICORT TURBUHALER [Concomitant]
     Active Substance: BUDESONIDE
     Dosage: UNK UNK, BID
  6. LYRICA [Concomitant]
     Active Substance: PREGABALIN
     Dosage: 150 DF, QID
     Route: 048
  7. VISTARIL [Concomitant]
     Active Substance: HYDROXYZINE PAMOATE
  8. TRILEPTAL [Concomitant]
     Active Substance: OXCARBAZEPINE
  9. TEGRETOL [Concomitant]
     Active Substance: CARBAMAZEPINE
  10. ALEVE [Suspect]
     Active Substance: NAPROXEN SODIUM
     Indication: PAIN
  11. BAYER ASPIRIN [Suspect]
     Active Substance: ASPIRIN
  12. TRAMADOL. [Concomitant]
     Active Substance: TRAMADOL
  13. SEROQUEL [Concomitant]
     Active Substance: QUETIAPINE FUMARATE
  14. CLONAZEPAM. [Concomitant]
     Active Substance: CLONAZEPAM
  15. DIFLUCAN [Concomitant]
     Active Substance: FLUCONAZOLE
  16. CODEINE [Concomitant]
     Active Substance: CODEINE
  17. LAMICTAL [Concomitant]
     Active Substance: LAMOTRIGINE
  18. DILANTIN [Concomitant]
     Active Substance: PHENYTOIN
  19. IBUPROFEN. [Concomitant]
     Active Substance: IBUPROFEN
  20. UNIPHYL [Concomitant]
     Active Substance: THEOPHYLLINE ANHYDROUS
     Dosage: 600 MG, UNK
  21. ALBUTEROL INHALER [Concomitant]
     Active Substance: ALBUTEROL
  22. DUONEB [Concomitant]
     Active Substance: ALBUTEROL SULFATE\IPRATROPIUM BROMIDE
     Dosage: UNK UNK, QID
  23. VICODIN [Concomitant]
     Active Substance: ACETAMINOPHEN\HYDROCODONE BITARTRATE
  24. ADVAIR DISKUS [Concomitant]
     Active Substance: FLUTICASONE PROPIONATE\SALMETEROL XINAFOATE
  25. ALEVE [Suspect]
     Active Substance: NAPROXEN SODIUM
     Indication: PLEURISY
     Dosage: 220 MG, 1-2 TABS EVERY 8-12 PRN
     Dates: start: 200210
  26. CLARITIN-D 12 HOUR [Concomitant]
     Active Substance: LORATADINE\PSEUDOEPHEDRINE SULFATE
  27. SINGULAIR [Concomitant]
     Active Substance: MONTELUKAST SODIUM
     Dosage: 10 MG, UNK
  28. NEXIUM [Concomitant]
     Active Substance: ESOMEPRAZOLE MAGNESIUM
     Dosage: 500/50 MCG

REACTIONS (8)
  - Pharyngeal oedema [Unknown]
  - Throat irritation [Unknown]
  - Product use in unapproved indication [Unknown]
  - Dyspnoea [Unknown]
  - Use of accessory respiratory muscles [Unknown]
  - Anaphylactic reaction [Unknown]
  - Oxygen saturation decreased [Unknown]
  - Urticaria [Unknown]

NARRATIVE: CASE EVENT DATE: 200210
